FAERS Safety Report 22595264 (Version 1)
Quarter: 2023Q2

REPORT INFORMATION
  Report Type: Spontaneous
  Country: CH (occurrence: CH)
  Receive Date: 20230613
  Receipt Date: 20230613
  Transmission Date: 20230721
  Serious: Yes (Hospitalization, Other)
  Sender: FDA-Public Use
  Company Number: None

PATIENT
  Age: 78 Year
  Sex: Female
  Weight: 51.6 kg

DRUGS (38)
  1. DOXORUBICIN [Suspect]
     Active Substance: DOXORUBICIN
     Indication: B-cell lymphoma recurrent
     Dosage: 87 MG, QD
     Route: 042
     Dates: start: 20221101, end: 20221101
  2. DOXORUBICIN [Suspect]
     Active Substance: DOXORUBICIN
     Dosage: 34 MG, QD LIPOSOMAL
     Route: 042
     Dates: start: 20230105, end: 20230105
  3. DOXORUBICIN [Suspect]
     Active Substance: DOXORUBICIN
     Dosage: 33 MG, QD LIPOSOMAL
     Route: 042
     Dates: start: 20230304, end: 20230304
  4. CYCLOPHOSPHAMIDE [Suspect]
     Active Substance: CYCLOPHOSPHAMIDE
     Indication: B-cell lymphoma recurrent
     Dosage: 1300 MG, QD
     Route: 042
     Dates: start: 20221101, end: 20221101
  5. CYCLOPHOSPHAMIDE [Suspect]
     Active Substance: CYCLOPHOSPHAMIDE
     Dosage: 700 MG, QD
     Route: 042
     Dates: start: 20221212, end: 20221212
  6. CYCLOPHOSPHAMIDE [Suspect]
     Active Substance: CYCLOPHOSPHAMIDE
     Dosage: 650 MG, QD
     Route: 042
     Dates: start: 20230126, end: 20230126
  7. CYCLOPHOSPHAMIDE [Suspect]
     Active Substance: CYCLOPHOSPHAMIDE
     Dosage: 650 MG, QD
     Route: 042
     Dates: start: 20230216, end: 20230216
  8. METHOTREXATE [Suspect]
     Active Substance: METHOTREXATE
     Indication: B-cell lymphoma recurrent
     Dosage: 2370 MG, QD
     Route: 042
     Dates: start: 20230421, end: 20230421
  9. METHOTREXATE [Suspect]
     Active Substance: METHOTREXATE
     Dosage: 15 MG, QD
     Route: 039
     Dates: start: 20230419, end: 20230419
  10. VINCRISTINE [Suspect]
     Active Substance: VINCRISTINE
     Indication: B-cell lymphoma recurrent
     Dosage: 2 MG, QD
     Route: 042
     Dates: start: 20221101, end: 20221101
  11. PREDNISONE [Suspect]
     Active Substance: PREDNISONE
     Indication: B-cell lymphoma recurrent
     Dosage: 69.5 MG, QD
     Route: 048
     Dates: start: 20221101, end: 20221105
  12. RITUXIMAB [Suspect]
     Active Substance: RITUXIMAB
     Indication: B-cell lymphoma recurrent
     Dosage: 600 MG, QD
     Route: 042
     Dates: start: 20221101, end: 20221101
  13. RITUXIMAB [Suspect]
     Active Substance: RITUXIMAB
     Dosage: 600 MG, QD
     Route: 042
     Dates: start: 20221128, end: 20221128
  14. RITUXIMAB [Suspect]
     Active Substance: RITUXIMAB
     Dosage: 600 MG, QD
     Route: 042
     Dates: start: 20221212, end: 20221212
  15. RITUXIMAB [Suspect]
     Active Substance: RITUXIMAB
     Dosage: 600 MG, QD
     Route: 042
     Dates: start: 20230126, end: 20230126
  16. RITUXIMAB [Suspect]
     Active Substance: RITUXIMAB
     Dosage: 600 MG, QD
     Route: 042
     Dates: start: 20230216, end: 20230216
  17. CYTARABINE [Concomitant]
     Active Substance: CYTARABINE
     Indication: High-grade B-cell lymphoma
     Dosage: 40 MG, QD
     Route: 037
     Dates: start: 20230419, end: 20230419
  18. METHYLPREDNISOLONE [Concomitant]
     Active Substance: METHYLPREDNISOLONE
     Indication: High-grade B-cell lymphoma
     Dosage: 40 MG, QD
     Route: 037
     Dates: start: 20230419, end: 20230419
  19. LEUCOVORIN [Concomitant]
     Active Substance: LEUCOVORIN
     Dosage: 30 MG, QD
     Route: 048
     Dates: start: 20230421, end: 20230421
  20. ASPIRIN [Concomitant]
     Active Substance: ASPIRIN
     Dosage: INGREDIENT (ACETYLSALICYLIC ACID): 100MG
     Route: 065
     Dates: end: 202211
  21. METOPROLOL SUCCINATE [Concomitant]
     Active Substance: METOPROLOL SUCCINATE
     Dosage: INGREDIENT (METOPROLOL SUCCINATE): 200MG
     Route: 065
  22. ALLOPURINOL [Concomitant]
     Active Substance: ALLOPURINOL
     Dosage: INGREDIENT (ALLOPURINOL): 100MG, STOP DATE: -NOV-2022
     Route: 065
  23. PREDNISONE [Concomitant]
     Active Substance: PREDNISONE
     Dosage: STOP DATE:-NOV-2022
     Route: 065
     Dates: start: 20221021
  24. PANTOZOL [Concomitant]
     Active Substance: PANTOPRAZOLE SODIUM
     Dosage: UNK
     Route: 065
     Dates: end: 20230418
  25. DAFALGAN [Concomitant]
     Active Substance: ACETAMINOPHEN
     Dosage: UNK
     Route: 065
  26. REMERON [Concomitant]
     Active Substance: MIRTAZAPINE
     Dosage: UNK
     Route: 065
     Dates: end: 20230418
  27. CRESEMBA [Concomitant]
     Active Substance: ISAVUCONAZONIUM SULFATE
     Dosage: UNK
     Route: 065
     Dates: end: 20230418
  28. CRESEMBA [Concomitant]
     Active Substance: ISAVUCONAZONIUM SULFATE
     Dosage: UNK
     Route: 065
     Dates: start: 20230423
  29. LISINOPRIL [Concomitant]
     Active Substance: LISINOPRIL
     Dosage: UNK
     Route: 065
     Dates: end: 20230418
  30. LISINOPRIL [Concomitant]
     Active Substance: LISINOPRIL
     Dosage: UNK
     Route: 065
     Dates: start: 20230421
  31. ELIQUIS [Concomitant]
     Active Substance: APIXABAN
     Dosage: UNK
     Route: 065
     Dates: end: 20230418
  32. ELIQUIS [Concomitant]
     Active Substance: APIXABAN
     Dosage: UNK
     Route: 065
     Dates: start: 20230420
  33. CALCIUM\CHOLECALCIFEROL [Concomitant]
     Active Substance: CALCIUM\CHOLECALCIFEROL
     Dosage: UNK
     Route: 065
     Dates: end: 20230418
  34. BACTRIM [Concomitant]
     Active Substance: SULFAMETHOXAZOLE\TRIMETHOPRIM
     Dosage: UNK
     Route: 065
     Dates: end: 20230419
  35. VALTREX [Concomitant]
     Active Substance: VALACYCLOVIR HYDROCHLORIDE
     Dosage: UNK
     Route: 065
  36. DEXAMETHASONE [Concomitant]
     Active Substance: DEXAMETHASONE
     Dosage: UNK
     Route: 065
     Dates: start: 20230419
  37. ATARAX [Concomitant]
     Active Substance: HYDROXYZINE HYDROCHLORIDE
     Route: 065
     Dates: start: 20230427
  38. NYSTATIN [Concomitant]
     Active Substance: NYSTATIN
     Dosage: UNK
     Route: 065
     Dates: start: 20230426

REACTIONS (6)
  - Cardiogenic shock [Recovered/Resolved]
  - Septic shock [Recovered/Resolved]
  - Gastrointestinal inflammation [Unknown]
  - Tumour lysis syndrome [Recovered/Resolved]
  - Agranulocytosis [Recovered/Resolved]
  - Stomatitis [Recovered/Resolved]

NARRATIVE: CASE EVENT DATE: 20221108
